FAERS Safety Report 19196348 (Version 5)
Quarter: 2021Q2

REPORT INFORMATION
  Report Type: Spontaneous
  Country: JP (occurrence: JP)
  Receive Date: 20210429
  Receipt Date: 20210623
  Transmission Date: 20210717
  Serious: Yes (Hospitalization)
  Sender: FDA-Public Use
  Company Number: JP-OTSUKA-2021_014125

PATIENT
  Age: 16 Year
  Sex: Male

DRUGS (3)
  1. REXULTI [Suspect]
     Active Substance: BREXPIPRAZOLE
     Indication: SCHIZOPHRENIA
     Dosage: 0.5 TABLET OF 1MG, QD
     Route: 048
     Dates: start: 20200515, end: 20200609
  2. INTUNIV [Suspect]
     Active Substance: GUANFACINE HYDROCHLORIDE
     Indication: HYPERKINESIA
     Dosage: 2 MG, QD
     Route: 048
     Dates: start: 20200214, end: 20200609
  3. INTUNIV [Suspect]
     Active Substance: GUANFACINE HYDROCHLORIDE
     Indication: IMPULSIVE BEHAVIOUR

REACTIONS (4)
  - Asthenia [Recovered/Resolved]
  - Product administered to patient of inappropriate age [Unknown]
  - Prescribed underdose [Unknown]
  - Altered state of consciousness [Recovered/Resolved]

NARRATIVE: CASE EVENT DATE: 20200519
